FAERS Safety Report 19559601 (Version 4)
Quarter: 2022Q1

REPORT INFORMATION
  Report Type: Spontaneous
  Country: US (occurrence: US)
  Receive Date: 20210716
  Receipt Date: 20220206
  Transmission Date: 20220424
  Serious: No
  Sender: FDA-Public Use
  Company Number: US-SA-SAC20210714000468

PATIENT
  Age: 25 Year
  Sex: Female

DRUGS (5)
  1. DUPIXENT [Suspect]
     Active Substance: DUPILUMAB
     Indication: Chronic rhinosinusitis with nasal polyps
     Dosage: 200 MG, QOW
     Route: 058
     Dates: start: 202010, end: 20211220
  2. DUPIXENT [Suspect]
     Active Substance: DUPILUMAB
     Indication: Nasal polyps
     Dosage: 200 MG, Q3W
     Route: 058
  3. NUVARING [Concomitant]
     Active Substance: ETHINYL ESTRADIOL\ETONOGESTREL
  4. FLUZONE QUADRIVALENT NOS [Concomitant]
     Active Substance: INFLUENZA A VIRUS A/CALIFORNIA/7/2009 X-179A (H1N1) ANTIGEN (FORMALDEHYDE INACTIVATED)\INFLUENZA A V
  5. NUCALA [Concomitant]
     Active Substance: MEPOLIZUMAB

REACTIONS (11)
  - Vision blurred [Unknown]
  - Injection site erythema [Unknown]
  - Nasal congestion [Unknown]
  - Eye irritation [Unknown]
  - Asthenopia [Unknown]
  - Injection site bruising [Unknown]
  - Injection site swelling [Unknown]
  - Adverse drug reaction [Unknown]
  - Product prescribing issue [Unknown]
  - Product use issue [Unknown]
  - Product use in unapproved indication [Unknown]
